FAERS Safety Report 9127456 (Version 1)
Quarter: 2013Q1

REPORT INFORMATION
  Report Type: Spontaneous
  Country: US (occurrence: US)
  Receive Date: 20130228
  Receipt Date: 20130228
  Transmission Date: 20140127
  Serious: No
  Sender: FDA-Public Use
  Company Number: US-GLAXOSMITHKLINE-A0977524A

PATIENT
  Sex: Female

DRUGS (6)
  1. LAMICTAL [Suspect]
     Indication: BIPOLAR DISORDER
     Dosage: 300MG VARIABLE DOSE
     Route: 048
     Dates: start: 2006
  2. LITHIUM [Concomitant]
  3. ORTHO EVRA [Concomitant]
  4. NORETHINDRONE ETHINYLOESTRADIOL [Concomitant]
  5. BIRTH CONTROL [Concomitant]
  6. ORTHOCYCLEN [Concomitant]

REACTIONS (7)
  - Mental impairment [Recovering/Resolving]
  - Feeling abnormal [Unknown]
  - Feeling drunk [Unknown]
  - Incoherent [Unknown]
  - Disturbance in attention [Unknown]
  - Social avoidant behaviour [Unknown]
  - Asthenia [Unknown]
